FAERS Safety Report 25569992 (Version 1)
Quarter: 2025Q3

REPORT INFORMATION
  Report Type: Spontaneous
  Country: US (occurrence: US)
  Receive Date: 20250717
  Receipt Date: 20250717
  Transmission Date: 20251021
  Serious: No
  Sender: ENDO
  Company Number: US-ENDO USA, INC.-2025-001365

PATIENT
  Age: 75 Year
  Sex: Female

DRUGS (4)
  1. CALCITONIN SALMON [Suspect]
     Active Substance: CALCITONIN SALMON
     Indication: Bone disorder
     Route: 065
  2. CALCITONIN SALMON [Suspect]
     Active Substance: CALCITONIN SALMON
     Route: 065
     Dates: end: 20250524
  3. BP (BLOOD PRESSURE) [Concomitant]
     Indication: Blood pressure abnormal
     Route: 065
  4. CHOLESTEROL CARE [Concomitant]
     Indication: Blood cholesterol abnormal
     Route: 065

REACTIONS (4)
  - Rhinorrhoea [Unknown]
  - Product dose omission issue [Not Recovered/Not Resolved]
  - Product storage error [Unknown]
  - Device leakage [Unknown]

NARRATIVE: CASE EVENT DATE: 20250523
